FAERS Safety Report 8201528 (Version 2)
Quarter: 2012Q4

REPORT INFORMATION
  Report Type: Report from Study
  Country: FR (occurrence: FR)
  Receive Date: 20111027
  Receipt Date: 20121029
  Transmission Date: 20130627
  Serious: Yes (Hospitalization)
  Sender: FDA-Public Use
  Company Number: FR-AMGEN-FRACT2010007466

PATIENT
  Age: 10 Year
  Sex: Male
  Weight: 55.8 kg

DRUGS (2)
  1. ETANERCEPT [Suspect]
     Indication: JUVENILE ARTHRITIS
     Dosage: 0.8 mg/kg weekly
     Route: 058
     Dates: start: 20091209, end: 20101110
  2. ETANERCEPT [Suspect]
     Dosage: 0.8 mg/kg, UNK
     Route: 058
     Dates: start: 20101222

REACTIONS (1)
  - Peritonitis [Recovered/Resolved]
